FAERS Safety Report 6163200-9 (Version None)
Quarter: 2009Q2

REPORT INFORMATION
  Report Type: 
  Country: None (occurrence: None)
  Receive Date: 20090422
  Receipt Date: 20090409
  Transmission Date: 20091009
  Serious: Yes (Hospitalization)
  Sender: FDA-Public Use
  Company Number: HU-MEDIMMUNE-MEDI-0008319

PATIENT
  Sex: Female

DRUGS (2)
  1. SYNAGIS [Suspect]
     Indication: ANTIVIRAL PROPHYLAXIS
     Route: 030
     Dates: start: 20081215, end: 20081215
  2. SYNAGIS [Suspect]
     Route: 030
     Dates: start: 20090121, end: 20090121

REACTIONS (1)
  - INFECTION [None]
